FAERS Safety Report 14719054 (Version 1)
Quarter: 2018Q2

REPORT INFORMATION
  Report Type: Spontaneous
  Country: GB (occurrence: GB)
  Receive Date: 20180405
  Receipt Date: 20180405
  Transmission Date: 20180711
  Serious: Yes (Other)
  Sender: FDA-Public Use
  Company Number: GB-TEVA-2018-GB-877988

PATIENT
  Age: 78 Year
  Sex: Female
  Weight: 47 kg

DRUGS (12)
  1. TERBINAFINE. [Suspect]
     Active Substance: TERBINAFINE
     Route: 048
     Dates: start: 20180206
  2. BETNOVATE [Concomitant]
     Active Substance: BETAMETHASONE
     Dosage: 2 DOSAGE FORMS DAILY; APPLY SPARINGLY  TO AFFECTED AREAS OF BODY
     Dates: start: 20180122
  3. BETAMETHASONE VALERATE. [Concomitant]
     Active Substance: BETAMETHASONE VALERATE
     Dosage: POTENCY: MODERATE. APPLY ONCE OR TWICE DAILY
     Dates: start: 20171204, end: 20180101
  4. AQUEOUS CREAM [Concomitant]
     Dosage: APPLY - USE AS SOAP
     Dates: start: 20180122
  5. TERBINAFINE. [Suspect]
     Active Substance: TERBINAFINE
     Route: 065
     Dates: start: 20171109
  6. CETRABEN EMOLLIENT CREAM [Concomitant]
     Dosage: USE AS DIRECTED FOR TRAVEL
     Dates: start: 20180206
  7. SYNALAR [Concomitant]
     Active Substance: FLUOCINOLONE ACETONIDE
     Dosage: 2 DOSAGE FORMS DAILY;
     Dates: start: 20171109, end: 20171116
  8. EMULSIFYING OINTMENT [Concomitant]
     Dosage: USE AS DIRECTED
     Dates: start: 20180122
  9. AMOXICILLIN. [Concomitant]
     Active Substance: AMOXICILLIN
     Dosage: 3 DOSAGE FORMS DAILY; FOR 7 DAY COURSE
     Dates: start: 20171204, end: 20171211
  10. DOUBLEBASE [Concomitant]
     Active Substance: ISOPROPYL MYRISTATE\PARAFFIN
     Route: 065
     Dates: start: 20180206
  11. HYDROCORTISONE. [Concomitant]
     Active Substance: HYDROCORTISONE
     Dosage: 2 DOSAGE FORMS DAILY; APPLY SP CUT TO ONCE A DAY FOR A FEW DAYS AF...
     Dates: start: 20180122, end: 20180205
  12. FLUCLOXACILLIN [Concomitant]
     Active Substance: FLUCLOXACILLIN
     Dosage: 4 DOSAGE FORMS DAILY;
     Dates: start: 20180206

REACTIONS (1)
  - Photosensitivity reaction [Recovering/Resolving]

NARRATIVE: CASE EVENT DATE: 20180206
